FAERS Safety Report 15332838 (Version 2)
Quarter: 2018Q4

REPORT INFORMATION
  Report Type: Spontaneous
  Country: US (occurrence: US)
  Receive Date: 20180830
  Receipt Date: 20180919
  Transmission Date: 20190204
  Serious: Yes (Hospitalization)
  Sender: FDA-Public Use
  Company Number: US-MELINTA-US-MLNT-18-00280

PATIENT
  Age: 55 Year
  Sex: Male
  Weight: 138.47 kg

DRUGS (2)
  1. ORBACTIV [Suspect]
     Active Substance: ORITAVANCIN
     Indication: OSTEOMYELITIS
     Route: 041
     Dates: start: 20180716, end: 20180716
  2. ORBACTIV [Suspect]
     Active Substance: ORITAVANCIN
     Indication: SKIN ULCER
     Route: 041
     Dates: start: 20180730, end: 20180730

REACTIONS (10)
  - Nausea [Unknown]
  - Headache [Unknown]
  - Chills [Unknown]
  - Restlessness [Unknown]
  - Back pain [Unknown]
  - Vomiting [Unknown]
  - Cardio-respiratory arrest [Unknown]
  - Feeling cold [Unknown]
  - Dyspnoea [Unknown]
  - Off label use [Unknown]

NARRATIVE: CASE EVENT DATE: 20180730
